FAERS Safety Report 6734754-6 (Version None)
Quarter: 2010Q2

REPORT INFORMATION
  Report Type: 
  Country: None (occurrence: None)
  Receive Date: 20100519
  Receipt Date: 20100519
  Transmission Date: 20101027
  Serious: Yes (Disabling)
  Sender: FDA-Public Use
  Company Number: None

PATIENT
  Age: 74 Year
  Sex: Female
  Weight: 95.2554 kg

DRUGS (1)
  1. LEVAQUIN [Suspect]
     Indication: INFECTION
     Dosage: 750MG ONE TABLE DAILY
     Dates: start: 20100331

REACTIONS (1)
  - MUSCLE TIGHTNESS [None]
